FAERS Safety Report 8385700-3 (Version None)
Quarter: 2012Q2

REPORT INFORMATION
  Report Type: 
  Country: None (occurrence: None)
  Receive Date: 20120525
  Receipt Date: 20120514
  Transmission Date: 20120825
  Serious: Yes (Other)
  Sender: FDA-Public Use
  Company Number: FR-BRISTOL-MYERS SQUIBB COMPANY-16510851

PATIENT
  Age: 78 Year
  Sex: Female
  Weight: 62 kg

DRUGS (4)
  1. FORADIL [Concomitant]
     Dates: start: 20110101
  2. COUMADIN [Suspect]
     Indication: ERYTHEMA
     Dosage: COUMADINE 2 MG , 1DF= ONE AND HALF TABLET
     Route: 048
     Dates: start: 20120228, end: 20120306
  3. HYDREA [Concomitant]
     Dates: start: 20090101
  4. FUROSEMIDE [Concomitant]
     Dates: start: 20100101

REACTIONS (1)
  - ASPHYXIA [None]
